FAERS Safety Report 4311037-5 (Version None)
Quarter: 2004Q1

REPORT INFORMATION
  Report Type: 
  Country: None (occurrence: None)
  Receive Date: 20040302
  Receipt Date: 20040217
  Transmission Date: 20041129
  Serious: Yes (Hospitalization, Other)
  Sender: FDA-Public Use
  Company Number: USA-2004-0013128

PATIENT
  Age: 16 Year
  Sex: Female

DRUGS (1)
  1. OXYCONTIN TABLETS (OXYCODONE HYDROCHLORIDE)  CR TABLET [Suspect]

REACTIONS (5)
  - AGGRESSION [None]
  - DRUG ABUSER [None]
  - DRUG DEPENDENCE [None]
  - SELF-MEDICATION [None]
  - SUICIDE ATTEMPT [None]
